FAERS Safety Report 17701426 (Version 1)
Quarter: 2020Q2

REPORT INFORMATION
  Report Type: Spontaneous
  Country: DE (occurrence: DE)
  Receive Date: 20200424
  Receipt Date: 20200424
  Transmission Date: 20200714
  Serious: Yes (Hospitalization)
  Sender: FDA-Public Use
  Company Number: DE-TEVA-2020-DE-1228276

PATIENT
  Age: 32 Year
  Sex: Male

DRUGS (5)
  1. CODICAPS [Suspect]
     Active Substance: CHLORPHENIRAMINE MALEATE\CODEINE PHOSPHATE
     Dates: start: 20191127
  2. SINUPRET [Suspect]
     Active Substance: DIETARY SUPPLEMENT\HERBALS
     Dates: start: 20191127
  3. AMOXICILLIN. [Suspect]
     Active Substance: AMOXICILLIN
     Dates: start: 20191127
  4. SALBUTAMOL [Suspect]
     Active Substance: ALBUTEROL
     Dates: start: 20191127
  5. MOMETAHEXAL [Suspect]
     Active Substance: MOMETASONE
     Dates: start: 20191127

REACTIONS (4)
  - Pruritus [Recovered/Resolved]
  - Rash [Recovered/Resolved]
  - Chills [Recovered/Resolved]
  - Oedema peripheral [Recovered/Resolved]
